FAERS Safety Report 21690815 (Version 1)
Quarter: 2022Q4

REPORT INFORMATION
  Report Type: Report from Study
  Country: CA (occurrence: CA)
  Receive Date: 20221207
  Receipt Date: 20221207
  Transmission Date: 20230113
  Serious: Yes (Death)
  Sender: FDA-Public Use
  Company Number: CA-HLS-202006696

PATIENT
  Sex: Male

DRUGS (1)
  1. CLOZARIL [Suspect]
     Active Substance: CLOZAPINE
     Indication: Product used for unknown indication
     Dosage: UNKNOWN
     Route: 048
     Dates: start: 19970126, end: 20201122

REACTIONS (5)
  - Acute kidney injury [Fatal]
  - Multiple organ dysfunction syndrome [Fatal]
  - Pneumonia [Fatal]
  - Septic shock [Fatal]
  - Small intestinal obstruction [Fatal]
